FAERS Safety Report 8193151-X (Version None)
Quarter: 2012Q1

REPORT INFORMATION
  Report Type: 
  Country: None (occurrence: None)
  Receive Date: 20120221
  Receipt Date: 20111115
  Transmission Date: 20120608
  Serious: No
  Sender: FDA-Public Use
  Company Number: 040832

PATIENT
  Sex: Female
  Weight: 53.1 kg

DRUGS (3)
  1. SYNTHROID [Concomitant]
  2. LACOSAMIDE [Suspect]
     Indication: CONVULSION
     Dosage: (150 MG BID ORAL)
     Route: 048
     Dates: start: 20110330, end: 20110511
  3. OXYCODONE HCL [Concomitant]

REACTIONS (4)
  - SOMNOLENCE [None]
  - MALAISE [None]
  - ADVERSE EVENT [None]
  - NYSTAGMUS [None]
